FAERS Safety Report 5806480-9 (Version None)
Quarter: 2008Q3

REPORT INFORMATION
  Report Type: 
  Country: None (occurrence: None)
  Receive Date: 20080710
  Receipt Date: 20070809
  Transmission Date: 20090109
  Serious: No
  Sender: FDA-Public Use
  Company Number: US-BAYER-US-2007-030020

PATIENT
  Sex: Female

DRUGS (5)
  1. CAMPATH [Suspect]
     Indication: CHRONIC LYMPHOCYTIC LEUKAEMIA
     Dosage: UNIT DOSE: 3 MG
     Route: 058
     Dates: start: 20070807, end: 20070807
  2. TYLENOL [Concomitant]
     Indication: PREMEDICATION
     Route: 048
     Dates: start: 20070807
  3. BENADRYL [Concomitant]
     Indication: PREMEDICATION
     Route: 048
     Dates: start: 20070807
  4. BACTRIM DS [Concomitant]
     Indication: INFECTION PROPHYLAXIS
     Route: 048
  5. FAMVIR /UNK/ [Concomitant]
     Indication: INFECTION PROPHYLAXIS
     Dosage: UNIT DOSE: 250 MG
     Route: 048

REACTIONS (1)
  - INJECTION SITE INFLAMMATION [None]
